FAERS Safety Report 8606566-X (Version None)
Quarter: 2012Q2

REPORT INFORMATION
  Report Type: 
  Country: None (occurrence: None)
  Receive Date: 20120423
  Receipt Date: 20101018
  Transmission Date: 20120825
  Serious: Yes (Other)
  Sender: FDA-Public Use
  Company Number: PHHY2010US64783

PATIENT
  Age: 5 Year
  Sex: Female

DRUGS (3)
  1. EXJADE [Suspect]
     Indication: BLOOD IRON INCREASED
     Dosage: 750 MG, QD, ORAL : 500 MG, ORAL
     Route: 048
     Dates: end: 20100301
  2. EXJADE [Suspect]
     Indication: BLOOD IRON INCREASED
     Dosage: 750 MG, QD, ORAL : 500 MG, ORAL
     Route: 048
     Dates: start: 20100820
  3. EXJADE [Suspect]
     Indication: BLOOD IRON INCREASED
     Dosage: 750 MG, QD, ORAL : 500 MG, ORAL
     Route: 048
     Dates: start: 20100705

REACTIONS (5)
  - SERUM FERRITIN INCREASED [None]
  - MYALGIA [None]
  - ARTHRALGIA [None]
  - DECREASED APPETITE [None]
  - ABDOMINAL PAIN [None]
